FAERS Safety Report 21374170 (Version 1)
Quarter: 2022Q3

REPORT INFORMATION
  Report Type: Spontaneous
  Country: JP (occurrence: JP)
  Receive Date: 20220926
  Receipt Date: 20220926
  Transmission Date: 20221027
  Serious: Yes (Hospitalization)
  Sender: FDA-Public Use
  Company Number: JP-SUN PHARMACEUTICAL INDUSTRIES LTD-2022RR-355910

PATIENT
  Age: 20 Year
  Sex: Male

DRUGS (6)
  1. CILOSTAZOL [Suspect]
     Active Substance: CILOSTAZOL
     Indication: Atrial fibrillation
     Dosage: 100 MILLIGRAM, DAILY
     Route: 065
  2. CILOSTAZOL [Suspect]
     Active Substance: CILOSTAZOL
     Dosage: 200 MILLIGRAM, DAILY
     Route: 065
  3. QUINIDINE [Suspect]
     Active Substance: QUINIDINE
     Indication: Atrial fibrillation
     Dosage: 200 MILLIGRAM, DAILY
     Route: 065
  4. QUINIDINE [Suspect]
     Active Substance: QUINIDINE
     Dosage: 600 MILLIGRAM, DAILY
     Route: 065
  5. QUINIDINE [Suspect]
     Active Substance: QUINIDINE
     Dosage: 400 MILLIGRAM, DAILY
     Route: 065
  6. ISOPROTERENOL [Concomitant]
     Active Substance: ISOPROTERENOL
     Indication: Atrial fibrillation
     Dosage: UNK

REACTIONS (3)
  - Drug ineffective [Unknown]
  - Disease recurrence [Unknown]
  - Drug resistance [Unknown]
